FAERS Safety Report 5472009-0 (Version None)
Quarter: 2007Q3

REPORT INFORMATION
  Report Type: 
  Country: None (occurrence: None)
  Receive Date: 20070928
  Receipt Date: 20070925
  Transmission Date: 20080115
  Serious: No
  Sender: FDA-Public Use
  Company Number: US-BOEHRINGER INGELHEIM PHARMACEUTICALS, INC.-2007-BP-20849BP

PATIENT
  Age: 80 Year
  Sex: Female

DRUGS (5)
  1. AGGRENOX [Suspect]
     Indication: CEREBROVASCULAR ACCIDENT PROPHYLAXIS
     Route: 048
     Dates: start: 20070906, end: 20070906
  2. AGGRENOX [Suspect]
     Indication: TRANSIENT ISCHAEMIC ATTACK
  3. LYRICA [Concomitant]
     Indication: PAIN IN EXTREMITY
  4. LYRICA [Concomitant]
     Indication: NEUROPATHY PERIPHERAL
  5. FOSAMAX [Concomitant]

REACTIONS (1)
  - HEADACHE [None]
